FAERS Safety Report 5720190-8 (Version None)
Quarter: 2008Q2

REPORT INFORMATION
  Report Type: 
  Country: None (occurrence: None)
  Receive Date: 20080428
  Receipt Date: 20070615
  Transmission Date: 20081010
  Serious: Yes (Other)
  Sender: FDA-Public Use
  Company Number: US-AMGEN-US226594

PATIENT
  Age: 44 Year
  Sex: Female
  Weight: 47.2 kg

DRUGS (9)
  1. SENSIPAR [Suspect]
     Indication: HYPERPARATHYROIDISM SECONDARY
     Route: 048
     Dates: start: 20060622
  2. NIFEDIPINE [Concomitant]
     Dates: start: 20070514
  3. CLONIDINE HCL [Concomitant]
     Dates: start: 20061118
  4. METOPROLOL TARTRATE [Concomitant]
     Dates: start: 20060807
  5. ALTACE [Concomitant]
     Dates: start: 20050421
  6. RENAGEL [Concomitant]
     Dates: start: 20060807
  7. LIPITOR [Concomitant]
     Dates: start: 20061118
  8. EPOGEN [Concomitant]
     Dates: start: 20060501
  9. VENOFER [Concomitant]
     Dates: start: 20060401

REACTIONS (1)
  - CHEST PAIN [None]
